FAERS Safety Report 10055591 (Version 1)
Quarter: 2014Q2

REPORT INFORMATION
  Report Type: Report from Study
  Country: DE (occurrence: DE)
  Receive Date: 20140403
  Receipt Date: 20140403
  Transmission Date: 20141212
  Serious: Yes (Hospitalization)
  Sender: FDA-Public Use
  Company Number: DE-ROCHE-1374348

PATIENT
  Age: 74 Year
  Sex: Female

DRUGS (29)
  1. TOCILIZUMAB [Suspect]
     Indication: RHEUMATOID ARTHRITIS
     Dosage: DATE OF LAST DOSE OF TOCILIZUMAB PRIOR TO SAE 25/FEB/2014
     Route: 042
  2. METHOTREXATE [Concomitant]
     Indication: RHEUMATOID ARTHRITIS
     Route: 065
     Dates: start: 200908, end: 20130822
  3. FOLIC ACID [Concomitant]
     Indication: RHEUMATOID ARTHRITIS
     Route: 048
     Dates: start: 200908, end: 20130822
  4. VIGANTOLETTEN [Concomitant]
     Indication: OSTEOPOROSIS
     Route: 048
  5. CANDESARTAN [Concomitant]
     Indication: HYPERTENSION
     Route: 048
     Dates: end: 20140305
  6. CANDESARTAN [Concomitant]
     Route: 048
     Dates: start: 20140306
  7. MOXONIDIN [Concomitant]
     Indication: HYPERTENSION
     Route: 048
  8. PANTOZOL (GERMANY) [Concomitant]
     Route: 048
  9. SIMVASTATIN [Concomitant]
     Route: 048
     Dates: end: 20140305
  10. VIANI [Concomitant]
     Indication: ASTHMA
     Route: 048
     Dates: start: 201207
  11. SPIRIVA [Concomitant]
     Indication: CHRONIC OBSTRUCTIVE PULMONARY DISEASE
     Route: 048
     Dates: start: 201110
  12. COLESTYRAMIN [Concomitant]
     Route: 048
     Dates: start: 20121120, end: 20121128
  13. AQUACORT (GERMANY) [Concomitant]
     Route: 065
     Dates: start: 20140129
  14. LIPOTALON [Concomitant]
     Indication: PERIARTHRITIS
     Route: 013
     Dates: start: 20130104, end: 20130104
  15. XYLONEURAL [Concomitant]
     Indication: PERIARTHRITIS
     Route: 013
     Dates: start: 20130104, end: 20130104
  16. AMOXICILLIN [Concomitant]
     Indication: OTITIS MEDIA
     Route: 048
     Dates: start: 20130225, end: 20130303
  17. FENISTIL (GERMANY) [Concomitant]
     Route: 048
     Dates: start: 20130906, end: 20130920
  18. FENISTIL (GERMANY) [Concomitant]
     Route: 048
     Dates: start: 20131031, end: 20131103
  19. CAPVAL ORAL DROPS [Concomitant]
     Indication: ASTHMA
     Route: 048
     Dates: start: 20131104, end: 20131105
  20. CAPVAL ORAL DROPS [Concomitant]
     Route: 048
     Dates: start: 20140109, end: 20140110
  21. DECORTIN [Concomitant]
     Indication: RHEUMATOID ARTHRITIS
     Route: 048
     Dates: start: 20131125, end: 20131203
  22. DECORTIN [Concomitant]
     Route: 048
     Dates: start: 20131204, end: 20140220
  23. IBUPROFEN [Concomitant]
     Indication: RHEUMATOID ARTHRITIS
     Route: 048
     Dates: start: 20131125, end: 20131127
  24. NOVALGIN (GERMANY) [Concomitant]
     Indication: RHEUMATOID ARTHRITIS
     Route: 048
     Dates: start: 20131125
  25. SALBUTAMOL [Concomitant]
     Indication: ASTHMA
     Route: 045
     Dates: start: 20131224
  26. ATROVENT [Concomitant]
     Indication: ASTHMA
     Route: 045
     Dates: start: 20131224
  27. ORTOTON [Concomitant]
     Route: 048
     Dates: start: 20130722, end: 20130809
  28. AMLODIPIN [Concomitant]
     Indication: HYPERTENSION
     Route: 048
     Dates: start: 20140322
  29. HYDROCHLOROTHIAZIDE [Concomitant]
     Indication: HYPERTENSION
     Route: 048
     Dates: start: 20140306

REACTIONS (2)
  - Asthma [Recovered/Resolved]
  - Bronchopulmonary aspergillosis [Recovered/Resolved]
